FAERS Safety Report 7141234-5 (Version None)
Quarter: 2010Q4

REPORT INFORMATION
  Report Type: 
  Country: None (occurrence: None)
  Receive Date: 20101207
  Receipt Date: 20101201
  Transmission Date: 20110411
  Serious: Yes (Hospitalization)
  Sender: FDA-Public Use
  Company Number: US-JNJFOC-20101104009

PATIENT
  Sex: Female
  Weight: 90.72 kg

DRUGS (7)
  1. FENTANYL-100 [Suspect]
     Indication: NECK PAIN
     Route: 062
  2. FENTANYL-100 [Suspect]
     Indication: BACK PAIN
     Route: 062
  3. SYNTHROID [Concomitant]
     Indication: THYROID DISORDER
     Route: 048
  4. IRON [Concomitant]
     Indication: ANAEMIA
     Route: 048
  5. VITAMIN TAB [Concomitant]
     Indication: VITAMIN SUPPLEMENTATION
     Route: 048
  6. MAXZIDE [Concomitant]
     Indication: CARDIAC FAILURE
     Route: 048
  7. NEXIUM [Concomitant]
     Indication: GASTRIC DISORDER
     Route: 048

REACTIONS (3)
  - FALL [None]
  - HIP FRACTURE [None]
  - PRODUCT QUALITY ISSUE [None]
